FAERS Safety Report 5154527-8 (Version None)
Quarter: 2006Q4

REPORT INFORMATION
  Report Type: 
  Country: None (occurrence: None)
  Receive Date: 20061114
  Receipt Date: 19980210
  Transmission Date: 20070319
  Serious: Yes (Hospitalization, Other)
  Sender: FDA-Public Use
  Company Number: 2006118403

PATIENT
  Age: 59 Year
  Sex: Male

DRUGS (2)
  1. IRINOTECAN HCL [Suspect]
     Indication: COLORECTAL CANCER METASTATIC
     Dosage: 350 MG/M*2 (EVERY 3 WEEKS), INTRAVENOUS
     Route: 042
     Dates: start: 19980116, end: 19980116
  2. PROSTAGUTT (POPULUS EXTRACT, SERENOA REPENS EXTRACT, URTICA EXTRACT) [Concomitant]

REACTIONS (8)
  - ANOREXIA [None]
  - BACK PAIN [None]
  - CARDIAC DISORDER [None]
  - CONSTIPATION [None]
  - FATIGUE [None]
  - HYPERHIDROSIS [None]
  - HYPERTENSION [None]
  - PERIPHERAL COLDNESS [None]
